FAERS Safety Report 23072304 (Version 1)
Quarter: 2023Q4

REPORT INFORMATION
  Report Type: Spontaneous
  Country: US (occurrence: US)
  Receive Date: 20231017
  Receipt Date: 20231017
  Transmission Date: 20240109
  Serious: No
  Sender: FDA-Public Use
  Company Number: US-GLAXOSMITHKLINE-US2023AMR141344

PATIENT
  Sex: Female

DRUGS (1)
  1. ZEJULA [Suspect]
     Active Substance: NIRAPARIB
     Indication: Ovarian cancer
     Dosage: 200 MG, QD
     Route: 048
     Dates: start: 20230915

REACTIONS (6)
  - Fatigue [Unknown]
  - Malaise [Unknown]
  - Pain [Unknown]
  - Gait inability [Unknown]
  - Illness [Unknown]
  - Loss of personal independence in daily activities [Unknown]
